FAERS Safety Report 9454737 (Version 1)
Quarter: 2013Q3

REPORT INFORMATION
  Report Type: Spontaneous
  Country: US (occurrence: DE)
  Receive Date: 20130812
  Receipt Date: 20130812
  Transmission Date: 20140515
  Serious: Yes (Hospitalization)
  Sender: FDA-Public Use
  Company Number: DE-FRI-1000046087

PATIENT
  Age: 66 Year
  Sex: Male

DRUGS (4)
  1. LINACLOTIDE [Suspect]
     Indication: IRRITABLE BOWEL SYNDROME
     Dosage: 1 DF
     Route: 048
     Dates: start: 20130515, end: 20130518
  2. LINACLOTIDE [Suspect]
     Indication: DIARRHOEA
  3. LINACLOTIDE [Suspect]
     Indication: FLATULENCE
  4. LINACLOTIDE [Suspect]
     Indication: ABDOMINAL RIGIDITY

REACTIONS (2)
  - Diarrhoea [Recovered/Resolved]
  - Loss of consciousness [Recovered/Resolved]
